FAERS Safety Report 18985019 (Version 1)
Quarter: 2021Q1

REPORT INFORMATION
  Report Type: Spontaneous
  Country: US (occurrence: US)
  Receive Date: 20210309
  Receipt Date: 20210309
  Transmission Date: 20210420
  Serious: No
  Sender: FDA-Public Use
  Company Number: US-GLENMARK PHARMACEUTICALS-2020GMK049321

PATIENT

DRUGS (5)
  1. IMIQUIMOD CREAM USP, 5% [Suspect]
     Active Substance: IMIQUIMOD
     Indication: PIGMENTATION DISORDER
     Dosage: UNK, OD (ONCE A DAY ON AND OFF)
     Route: 061
     Dates: start: 2020, end: 20200814
  2. CLARITIN [Concomitant]
     Active Substance: LORATADINE
     Indication: HYPERSENSITIVITY
     Dosage: UNK
     Route: 065
  3. IMIQUIMOD CREAM USP, 5% [Suspect]
     Active Substance: IMIQUIMOD
     Indication: PRECANCEROUS CONDITION
     Dosage: UNK, OD (ONCE A DAY ON AND OFF)
     Route: 061
     Dates: start: 20200707, end: 2020
  4. VITAMIN D NOS [Concomitant]
     Active Substance: VITAMIN D NOS
     Indication: PRODUCT USED FOR UNKNOWN INDICATION
     Dosage: UNK
     Route: 065
  5. CALCIUM [Concomitant]
     Active Substance: CALCIUM
     Indication: PRODUCT USED FOR UNKNOWN INDICATION
     Dosage: UNK
     Route: 065

REACTIONS (13)
  - Chills [Recovered/Resolved]
  - Nausea [Recovering/Resolving]
  - Fatigue [Recovering/Resolving]
  - Pyrexia [Recovered/Resolved]
  - Headache [Recovered/Resolved]
  - Taste disorder [Recovered/Resolved]
  - Blister [Recovered/Resolved]
  - Influenza like illness [Recovered/Resolved]
  - Product use in unapproved indication [Unknown]
  - Pain [Recovered/Resolved]
  - Pain in extremity [Recovered/Resolved]
  - Eye pain [Recovered/Resolved]
  - Myalgia [Recovered/Resolved]

NARRATIVE: CASE EVENT DATE: 2020
